FAERS Safety Report 15310618 (Version 2)
Quarter: 2018Q4

REPORT INFORMATION
  Report Type: Spontaneous
  Country: US (occurrence: US)
  Receive Date: 20180823
  Receipt Date: 20181026
  Transmission Date: 20190204
  Serious: No
  Sender: FDA-Public Use
  Company Number: US-ASTRAZENECA-2018SE97258

PATIENT
  Sex: Female
  Weight: 103.4 kg

DRUGS (1)
  1. SYMBICORT [Suspect]
     Active Substance: BUDESONIDE\FORMOTEROL FUMARATE DIHYDRATE
     Indication: CHRONIC OBSTRUCTIVE PULMONARY DISEASE
     Dosage: 160/4.5 MCG, TWICE A DAY
     Route: 055

REACTIONS (6)
  - Device difficult to use [Unknown]
  - Circumstance or information capable of leading to medication error [Unknown]
  - Cough [Unknown]
  - Product dose omission [Unknown]
  - Productive cough [Unknown]
  - Device malfunction [Unknown]
